FAERS Safety Report 9888381 (Version 1)
Quarter: 2014Q1

REPORT INFORMATION
  Report Type: Spontaneous
  Country: DE (occurrence: None)
  Receive Date: 20140207
  Receipt Date: 20140207
  Transmission Date: 20141002
  Serious: Yes (Life-Threatening, Hospitalization, Disabling)
  Sender: FDA-Public Use
  Company Number: 1401-0207

PATIENT
  Age: 73 Year
  Sex: Male

DRUGS (4)
  1. EYLEA (AFLIBERCEPT) (SOLUTION FOR INJECTION) (AFLIBERCEPT) [Suspect]
     Indication: COLON CANCER METASTATIC
     Route: 042
     Dates: start: 20131125
  2. 5-FLUOROURACIL (FLUOROURACIL) [Concomitant]
  3. IRINOTECAN (IRINOTECAN) [Concomitant]
  4. LEUCOVORIN (FOLINIC ACID) [Concomitant]

REACTIONS (9)
  - Posterior reversible encephalopathy syndrome [None]
  - Lower respiratory tract infection [None]
  - Neutropenic sepsis [None]
  - Malignant neoplasm progression [None]
  - General physical health deterioration [None]
  - Colon cancer metastatic [None]
  - Confusional state [None]
  - Nausea [None]
  - Vomiting [None]
